FAERS Safety Report 13752726 (Version 1)
Quarter: 2017Q3

REPORT INFORMATION
  Report Type: Spontaneous
  Country: US (occurrence: US)
  Receive Date: 20170713
  Receipt Date: 20170713
  Transmission Date: 20171127
  Serious: Yes (Other)
  Sender: FDA-Public Use
  Company Number: None

PATIENT
  Age: 43 Year
  Sex: Female
  Weight: 81 kg

DRUGS (4)
  1. L-LYSINE [Concomitant]
     Active Substance: LYSINE
  2. CIPROFLOXACIN. [Suspect]
     Active Substance: CIPROFLOXACIN
     Indication: URINARY TRACT INFECTION
     Dosage: ?          OTHER STRENGTH:MG;QUANTITY:10 TABLET(S);?
     Route: 048
     Dates: start: 20170614, end: 20170618
  3. HUMULIN R INSULIN [Concomitant]
  4. BLACK CUMIN SEED OIL [Concomitant]

REACTIONS (12)
  - Middle insomnia [None]
  - Musculoskeletal pain [None]
  - Blood glucose increased [None]
  - Malaise [None]
  - Cold sweat [None]
  - Somnolence [None]
  - Back pain [None]
  - Arthralgia [None]
  - Tendonitis [None]
  - Vomiting [None]
  - Diarrhoea [None]
  - Pain in extremity [None]

NARRATIVE: CASE EVENT DATE: 20170618
